FAERS Safety Report 11944296 (Version 5)
Quarter: 2016Q2

REPORT INFORMATION
  Report Type: Report from Study
  Country: US (occurrence: US)
  Receive Date: 20160125
  Receipt Date: 20160506
  Transmission Date: 20160815
  Serious: Yes (Hospitalization, Other)
  Sender: FDA-Public Use
  Company Number: US-AMGEN-USASL2016007035

PATIENT
  Age: 48 Year
  Sex: Male

DRUGS (2)
  1. ENBREL [Suspect]
     Active Substance: ETANERCEPT
     Indication: PSORIASIS
  2. ENBREL [Suspect]
     Active Substance: ETANERCEPT
     Indication: PSORIATIC ARTHROPATHY
     Dosage: 50 MG, 2 TIMES/WK
     Route: 065
     Dates: start: 2010

REACTIONS (7)
  - Calcinosis [Unknown]
  - Arthralgia [Unknown]
  - Staphylococcal infection [Recovered/Resolved]
  - Pain in extremity [Unknown]
  - Surgery [Unknown]
  - Device issue [Unknown]
  - Psoriasis [Unknown]

NARRATIVE: CASE EVENT DATE: 2012
